FAERS Safety Report 7628329-4 (Version None)
Quarter: 2011Q3

REPORT INFORMATION
  Report Type: 
  Country: None (occurrence: None)
  Receive Date: 20110722
  Receipt Date: 20110718
  Transmission Date: 20111222
  Serious: Yes (Death, Hospitalization)
  Sender: FDA-Public Use
  Company Number: GR-JNJFOC-20110403798

PATIENT
  Sex: Male

DRUGS (1)
  1. RISPERDAL CONSTA [Suspect]
     Indication: SCHIZOPHRENIA
     Route: 030

REACTIONS (5)
  - HOSPITALISATION [None]
  - OVERDOSE [None]
  - DEATH [None]
  - SOMNOLENCE [None]
  - OEDEMA PERIPHERAL [None]
